FAERS Safety Report 5243863-2 (Version None)
Quarter: 2007Q1

REPORT INFORMATION
  Report Type: 
  Country: None (occurrence: None)
  Receive Date: 20070220
  Receipt Date: 20070220
  Transmission Date: 20070707
  Serious: Yes (Other)
  Sender: FDA-Public Use
  Company Number: None

PATIENT
  Age: 40 Year
  Sex: Male
  Weight: 81.6475 kg

DRUGS (1)
  1. NEUPOGEN [Suspect]
     Indication: STEM CELL TRANSPLANT
     Dosage: 5 MCG DAILY X 5 DAY SQ
     Route: 058
     Dates: start: 20030201, end: 20030301

REACTIONS (4)
  - ABDOMINAL DISTENSION [None]
  - ABDOMINAL PAIN [None]
  - MULTIPLE SCLEROSIS [None]
  - SPLENOMEGALY [None]
